FAERS Safety Report 23604983 (Version 1)
Quarter: 2024Q1

REPORT INFORMATION
  Report Type: Spontaneous
  Country: US (occurrence: US)
  Receive Date: 20240307
  Receipt Date: 20240307
  Transmission Date: 20240410
  Serious: No
  Sender: FDA-Public Use
  Company Number: US-009507513-2402USA009719

PATIENT
  Age: 65 Year
  Sex: Female

DRUGS (1)
  1. MOLNUPIRAVIR [Suspect]
     Active Substance: MOLNUPIRAVIR
     Dosage: 200MG/4 PILLS 2 TIMES A DAY
     Route: 048
     Dates: start: 20240225, end: 20240227

REACTIONS (9)
  - Product dose omission issue [Unknown]
  - Product primary packaging issue [Unknown]
  - Product physical issue [Unknown]
  - Product leakage [Unknown]
  - Poor quality product administered [Unknown]
  - Incorrect dosage administered [Unknown]
  - Incorrect dosage administered [Unknown]
  - Incorrect dosage administered [Unknown]
  - No adverse event [Unknown]

NARRATIVE: CASE EVENT DATE: 20240201
